FAERS Safety Report 22003067 (Version 3)
Quarter: 2023Q1

REPORT INFORMATION
  Report Type: Spontaneous
  Country: JP (occurrence: JP)
  Receive Date: 20230217
  Receipt Date: 20230327
  Transmission Date: 20230418
  Serious: Yes (Hospitalization, Disabling, Other)
  Sender: FDA-Public Use
  Company Number: JP-TAKEDA-2023TJP002151

PATIENT
  Age: 4 Decade
  Sex: Male
  Weight: 70 kg

DRUGS (3)
  1. ADYNOVATE [Suspect]
     Active Substance: ANTIHEMOPHILIC FACTOR, HUMAN RECOMBINANT
     Indication: Haemophilia
     Dosage: 3000 INTERNATIONAL UNIT
     Route: 042
  2. ADYNOVATE [Suspect]
     Active Substance: ANTIHEMOPHILIC FACTOR, HUMAN RECOMBINANT
     Indication: Haemophilia
     Dosage: 3000 INTERNATIONAL UNIT
     Route: 042
  3. ADYNOVATE [Suspect]
     Active Substance: ANTIHEMOPHILIC FACTOR, HUMAN RECOMBINANT
     Indication: Haemophilia
     Dosage: 3000 INTERNATIONAL UNIT
     Route: 042

REACTIONS (1)
  - Haemorrhage intracranial [Recovered/Resolved with Sequelae]

NARRATIVE: CASE EVENT DATE: 20221201
